FAERS Safety Report 9100639 (Version 2)
Quarter: 2013Q3

REPORT INFORMATION
  Report Type: Spontaneous
  Country: US (occurrence: US)
  Receive Date: 20130215
  Receipt Date: 20130812
  Transmission Date: 20140515
  Serious: Yes (Hospitalization)
  Sender: FDA-Public Use
  Company Number: US-BAYER-2013-018676

PATIENT
  Age: 24 Year
  Sex: Female
  Weight: 86.17 kg

DRUGS (22)
  1. YAZ [Suspect]
     Dosage: UNK
     Dates: start: 201001, end: 201002
  2. ORTHO EVRA [Concomitant]
     Dosage: UNK
     Dates: start: 20050109, end: 20060210
  3. TRI-SPRINTEC [Concomitant]
     Dosage: UNK
     Dates: start: 20060327
  4. MEDROXYPROGESTERONE [Concomitant]
     Dosage: UNK
     Dates: start: 20060722
  5. MEDROXYPROGESTERONE [Concomitant]
     Dosage: UNK
     Dates: start: 20061115
  6. MEDROXYPROGESTERONE [Concomitant]
     Dosage: UNK
     Dates: start: 20080410
  7. NUVARING [Concomitant]
     Dosage: UNK
     Dates: start: 20061201
  8. LOW-OGESTREL [Concomitant]
     Dosage: UNK
     Dates: start: 20100127
  9. CITALOPRAM HYDROBROMIDE [Concomitant]
     Dosage: UNK
     Dates: start: 200602, end: 201301
  10. IBUFRAMEN [Concomitant]
     Dosage: AS NEEDED
     Dates: start: 200604, end: 201002
  11. METRONIDAZOLE [Concomitant]
     Dosage: UNK
     Dates: start: 200605, end: 201202
  12. CLONAZEPAM [Concomitant]
     Dosage: UNK
     Dates: start: 200708, end: 201301
  13. TEMAZEPAM [Concomitant]
     Dosage: UNK
     Dates: start: 200811, end: 201106
  14. ZOLPIDEM TARTRATE [Concomitant]
     Dosage: UNK
     Dates: start: 200812, end: 201301
  15. SEROQUEL [Concomitant]
     Dosage: UNK
     Dates: start: 200903, end: 201108
  16. LEVOTHYROXINE [Concomitant]
     Dosage: UNK
     Dates: start: 200905, end: 201112
  17. HYDROCODONE [Concomitant]
     Dosage: UNK
     Dates: start: 200906, end: 201002
  18. GABAPENTIN [Concomitant]
     Dosage: UNK
     Dates: start: 200908, end: 201301
  19. ABILIFY [Concomitant]
     Dosage: UNK
     Dates: start: 200911, end: 201002
  20. LUNESTA [Concomitant]
     Dosage: UNK
     Dates: start: 200911, end: 201002
  21. CYCLOBENZAPRINE [Concomitant]
     Dosage: UNK
     Dates: start: 201002
  22. CELEXA [Concomitant]

REACTIONS (6)
  - Pulmonary embolism [Recovered/Resolved]
  - Injury [Recovered/Resolved]
  - Pain [Recovered/Resolved]
  - Emotional distress [None]
  - Anxiety [None]
  - Psychological trauma [None]
